FAERS Safety Report 5972185-7 (Version None)
Quarter: 2008Q4

REPORT INFORMATION
  Report Type: 
  Country: None (occurrence: None)
  Receive Date: 20081201
  Receipt Date: 20071017
  Transmission Date: 20090506
  Serious: Yes (Other)
  Sender: FDA-Public Use
  Company Number: US-TEVA-163022USA

PATIENT
  Age: 71 Year
  Sex: Male
  Weight: 54.48 kg

DRUGS (1)
  1. SALBUTAMOL SULFATE INHALATION, 0.09 MG [Suspect]
     Dates: start: 20060101

REACTIONS (3)
  - DRUG DEPENDENCE [None]
  - IRRITABILITY [None]
  - THROAT TIGHTNESS [None]
